FAERS Safety Report 12484279 (Version 1)
Quarter: 2016Q2

REPORT INFORMATION
  Report Type: Spontaneous
  Country: IN (occurrence: IN)
  Receive Date: 20160621
  Receipt Date: 20160621
  Transmission Date: 20160815
  Serious: Yes (Hospitalization, Other)
  Sender: FDA-Public Use
  Company Number: IN-CELGENEUS-IND-2016061812

PATIENT
  Age: 19 Year
  Sex: Female

DRUGS (2)
  1. THALIDOMIDE [Suspect]
     Active Substance: THALIDOMIDE
     Indication: OFF LABEL USE
  2. THALIDOMIDE [Suspect]
     Active Substance: THALIDOMIDE
     Indication: HEREDITARY HAEMORRHAGIC TELANGIECTASIA
     Dosage: 100 MILLIGRAM
     Route: 048

REACTIONS (4)
  - Haemoptysis [Unknown]
  - Epistaxis [Unknown]
  - Telangiectasia [Unknown]
  - Drug ineffective [Unknown]
